FAERS Safety Report 16078877 (Version 2)
Quarter: 2019Q1

REPORT INFORMATION
  Report Type: Spontaneous
  Country: US (occurrence: US)
  Receive Date: 20190315
  Receipt Date: 20190318
  Transmission Date: 20190418
  Serious: Yes (Other)
  Sender: FDA-Public Use
  Company Number: US-PFIZER INC-2019101936

PATIENT
  Age: 16 Year
  Sex: Male
  Weight: 78 kg

DRUGS (2)
  1. DEXTROMETHORPHAN HYDROBROMIDE. [Suspect]
     Active Substance: DEXTROMETHORPHAN HYDROBROMIDE
     Dosage: UNK
     Route: 048
  2. METHYLENEDIOXYMETHAMPHETAMINE [Suspect]
     Active Substance: MIDOMAFETAMINE
     Dosage: UNK
     Route: 048

REACTIONS (3)
  - Aggression [Recovering/Resolving]
  - Agitation [Recovering/Resolving]
  - Delirium [Recovering/Resolving]
